FAERS Safety Report 21659431 (Version 3)
Quarter: 2023Q1

REPORT INFORMATION
  Report Type: Spontaneous
  Country: JP (occurrence: JP)
  Receive Date: 20221129
  Receipt Date: 20230327
  Transmission Date: 20230418
  Serious: Yes (Death, Hospitalization)
  Sender: FDA-Public Use
  Company Number: JP-CHUGAI-2022046705

PATIENT
  Age: 75 Year
  Sex: Male
  Weight: 55.7 kg

DRUGS (15)
  1. AVASTIN [Suspect]
     Active Substance: BEVACIZUMAB
     Indication: Malignant glioma
     Dosage: 500 MILLIGRAM, ONCE/2WEEKS
     Route: 041
     Dates: start: 20220720, end: 20220803
  2. TEMOZOLOMIDE [Concomitant]
     Active Substance: TEMOZOLOMIDE
     Indication: Malignant glioma
     Dosage: UNK
     Route: 048
     Dates: start: 20220518, end: 20220607
  3. TEMOZOLOMIDE [Concomitant]
     Active Substance: TEMOZOLOMIDE
     Dosage: UNK
     Route: 048
     Dates: start: 20220706, end: 20220710
  4. TEMOZOLOMIDE [Concomitant]
     Active Substance: TEMOZOLOMIDE
     Dosage: UNK
     Route: 048
     Dates: start: 20220803, end: 20220807
  5. MAGNESIUM OXIDE [Concomitant]
     Active Substance: MAGNESIUM OXIDE
     Dosage: UNK
     Route: 048
     Dates: start: 20220609, end: 20220828
  6. DECADRON [Concomitant]
     Active Substance: DEXAMETHASONE
     Dosage: UNK
     Route: 048
     Dates: start: 20220629, end: 20220828
  7. TRAVELMIN [DIPHENHYDRAMINE SALICYLATE;DIPROPHYLLINE] [Concomitant]
     Dosage: UNK
     Route: 048
     Dates: start: 20220706, end: 20220828
  8. LANSOPRAZOLE [Concomitant]
     Active Substance: LANSOPRAZOLE
     Dosage: UNK
     Route: 048
     Dates: start: 20220507, end: 20220828
  9. GRANISETRON HYDROCHLORIDE [Concomitant]
     Active Substance: GRANISETRON HYDROCHLORIDE
     Dosage: UNK
     Route: 048
     Dates: start: 20220706, end: 20220710
  10. GRANISETRON HYDROCHLORIDE [Concomitant]
     Active Substance: GRANISETRON HYDROCHLORIDE
     Dosage: UNK
     Route: 048
     Dates: start: 20220803, end: 20220807
  11. SULFAMETHOXAZOLE\TRIMETHOPRIM [Concomitant]
     Active Substance: SULFAMETHOXAZOLE\TRIMETHOPRIM
     Dosage: UNK
     Route: 048
     Dates: start: 20220706, end: 20220717
  12. SULFAMETHOXAZOLE\TRIMETHOPRIM [Concomitant]
     Active Substance: SULFAMETHOXAZOLE\TRIMETHOPRIM
     Dosage: UNK
     Route: 048
     Dates: start: 20220803, end: 20220814
  13. LUNESTA [Concomitant]
     Active Substance: ESZOPICLONE
     Dosage: UNK
     Route: 048
     Dates: start: 20220803, end: 20220829
  14. TRAMADOL [Concomitant]
     Active Substance: TRAMADOL
     Indication: Pain
     Dosage: UNK, PRN?AS REQUIRED
     Route: 048
  15. LOXOPROFEN SODIUM [Concomitant]
     Active Substance: LOXOPROFEN SODIUM
     Indication: Pain
     Dosage: UNK, PRN?AS REQUIRED
     Route: 048

REACTIONS (6)
  - Fall [Unknown]
  - Contusion [Unknown]
  - Respiratory tract infection [Fatal]
  - Large intestine perforation [Fatal]
  - Sepsis [Fatal]
  - Lower gastrointestinal perforation [Fatal]

NARRATIVE: CASE EVENT DATE: 20220801
